FAERS Safety Report 5349033-1 (Version None)
Quarter: 2007Q2

REPORT INFORMATION
  Report Type: 
  Country: None (occurrence: None)
  Receive Date: 20070607
  Receipt Date: 20070525
  Transmission Date: 20071010
  Serious: Yes (Other)
  Sender: FDA-Public Use
  Company Number: AU-NOVOPROD-264222

PATIENT
  Sex: Female

DRUGS (2)
  1. ACTRAPID [Suspect]
     Indication: DIABETES MELLITUS
     Dosage: 42+40+40 IU, QD
  2. PROTAPHANE [Concomitant]
     Indication: DIABETES MELLITUS
     Dosage: 22+50 IU, QD

REACTIONS (1)
  - HEPATIC STEATOSIS [None]
